FAERS Safety Report 11664185 (Version 1)
Quarter: 2015Q4

REPORT INFORMATION
  Report Type: Report from Study
  Country: US (occurrence: US)
  Receive Date: 20151027
  Receipt Date: 20151027
  Transmission Date: 20160304
  Serious: No
  Sender: FDA-Public Use
  Company Number: PHEH2015US001958

PATIENT
  Age: 65 Year
  Sex: Male

DRUGS (1)
  1. EXJADE [Suspect]
     Active Substance: DEFERASIROX
     Indication: CHRONIC LYMPHOCYTIC LEUKAEMIA
     Dosage: 4 DF MIX AND DRINK,  QD ON EMPTY STOMACH
     Route: 065
     Dates: start: 201409

REACTIONS (2)
  - Malaise [Unknown]
  - Product use issue [Unknown]

NARRATIVE: CASE EVENT DATE: 201409
